FAERS Safety Report 25352910 (Version 1)
Quarter: 2025Q2

REPORT INFORMATION
  Report Type: Report from Study
  Country: US (occurrence: US)
  Receive Date: 20250523
  Receipt Date: 20250523
  Transmission Date: 20250717
  Serious: Yes (Other)
  Sender: OTSUKA
  Company Number: US-OTSUKA-2025_003465

PATIENT
  Sex: Male

DRUGS (2)
  1. TOLVAPTAN [Suspect]
     Active Substance: TOLVAPTAN
     Indication: Congenital cystic kidney disease
     Route: 065
     Dates: start: 20230210
  2. TOLVAPTAN [Suspect]
     Active Substance: TOLVAPTAN
     Route: 065
     Dates: start: 20250123

REACTIONS (8)
  - Renal impairment [Recovered/Resolved]
  - Pharyngitis streptococcal [Unknown]
  - Abdominal discomfort [Unknown]
  - Oral candidiasis [Unknown]
  - Hypertension [Recovered/Resolved]
  - Thirst [Unknown]
  - Polyuria [Unknown]
  - Treatment noncompliance [Unknown]

NARRATIVE: CASE EVENT DATE: 20250210
